FAERS Safety Report 7001257-3 (Version None)
Quarter: 2010Q3

REPORT INFORMATION
  Report Type: 
  Country: None (occurrence: None)
  Receive Date: 20100920
  Receipt Date: 20091222
  Transmission Date: 20110219
  Serious: No
  Sender: FDA-Public Use
  Company Number: US-ASTRAZENECA-2009SE33179

PATIENT
  Sex: Female

DRUGS (3)
  1. SEROQUEL [Suspect]
     Dosage: 1 TAB TID AND 2 HS, 125-150 MG
     Route: 048
  2. CITALOPRAM HYDROBROMIDE [Concomitant]
  3. LORAZEPAM [Concomitant]

REACTIONS (2)
  - AVERSION [None]
  - NAIL DISCOLOURATION [None]
